FAERS Safety Report 5490021-2 (Version None)
Quarter: 2007Q4

REPORT INFORMATION
  Report Type: 
  Country: None (occurrence: None)
  Receive Date: 20071016
  Receipt Date: 20071005
  Transmission Date: 20080405
  Serious: Yes (Death)
  Sender: FDA-Public Use
  Company Number: 2007BI021302

PATIENT
  Age: 33 Year
  Sex: Female

DRUGS (4)
  1. NATALIZUMAB [Suspect]
     Indication: DRUG USE FOR UNKNOWN INDICATION
     Dosage: IV
     Route: 042
     Dates: start: 20070706, end: 20070803
  2. KEPPRA [Concomitant]
  3. BACLOFEN [Concomitant]
  4. CELEXA [Concomitant]

REACTIONS (1)
  - CONVULSION [None]
